FAERS Safety Report 20696386 (Version 3)
Quarter: 2022Q2

REPORT INFORMATION
  Report Type: Report from Study
  Country: EG (occurrence: EG)
  Receive Date: 20220411
  Receipt Date: 20220419
  Transmission Date: 20220721
  Serious: Yes (Other)
  Sender: FDA-Public Use
  Company Number: EG-NOVARTISPH-NVSC2022EG080110

PATIENT
  Age: 62 Year
  Sex: Male

DRUGS (9)
  1. ENTRESTO [Suspect]
     Active Substance: SACUBITRIL\VALSARTAN
     Indication: Cardiac failure
     Dosage: UNK (ONE TABLET ONCE DAILY FOR 2 WEEKS THEN ONE TABLET TWICE DAILY FOR THE OTHER 2 WEEKS DEPENDS ON
     Route: 048
     Dates: start: 20210801
  2. ELIQUIS [Concomitant]
     Active Substance: APIXABAN
     Indication: Anticoagulant therapy
     Dosage: UNK (ONE TABLET PER DAY)
     Route: 065
     Dates: start: 202108
  3. PLAVIX [Concomitant]
     Active Substance: CLOPIDOGREL BISULFATE
     Indication: Anticoagulant therapy
     Dosage: UNK (ONE TABLET PER DAY AT NIGHT)
     Route: 065
     Dates: start: 2012
  4. DAPAGLIFLOZIN [Concomitant]
     Active Substance: DAPAGLIFLOZIN
     Indication: Diabetes mellitus
     Dosage: UNK (ONE TABLET PER DAY IN THE MORNING)
     Route: 065
     Dates: start: 2012
  5. JANUMET [Concomitant]
     Active Substance: METFORMIN HYDROCHLORIDE\SITAGLIPTIN PHOSPHATE
     Indication: Diabetes mellitus
     Dosage: UNK (ONE TABLET PER DAY AT NIGHT)
     Route: 065
     Dates: start: 2012
  6. AMARYL [Concomitant]
     Active Substance: GLIMEPIRIDE
     Indication: Diabetes mellitus
     Dosage: UNK (ONE TABLET IN THE MORNING BEFORE FOOD PER DAY)
     Route: 065
     Dates: start: 2012
  7. NAPIZOLE [Concomitant]
     Indication: Abdominal discomfort
     Dosage: UNK (ONE TABLET PER DAY)
     Route: 065
     Dates: start: 2012
  8. DILATROL [Concomitant]
     Indication: Blood pressure measurement
     Dosage: UNK (TWO TABLETS IN THE MORNING AND 2 TABLETS AT NIGHT)
     Route: 065
     Dates: start: 202108
  9. EXAMIDE [Concomitant]
     Indication: Diuretic therapy
     Dosage: UNK (2MG WHEN NEEDED) ONE TABLET TWICE DAILY ONE IN THE MORNING AND ONE AT NIGHT
     Route: 065
     Dates: start: 202108

REACTIONS (9)
  - Pericardial effusion [Recovering/Resolving]
  - Pleural effusion [Recovering/Resolving]
  - Oedema peripheral [Recovering/Resolving]
  - Blood pressure increased [Recovering/Resolving]
  - Haemorrhage [Recovering/Resolving]
  - Scratch [Recovering/Resolving]
  - Pruritus [Recovering/Resolving]
  - Fatigue [Recovering/Resolving]
  - Inappropriate schedule of product administration [Not Recovered/Not Resolved]

NARRATIVE: CASE EVENT DATE: 20211025
